FAERS Safety Report 6522466-3 (Version None)
Quarter: 2009Q4

REPORT INFORMATION
  Report Type: 
  Country: None (occurrence: None)
  Receive Date: 20091230
  Receipt Date: 20091228
  Transmission Date: 20100525
  Serious: No
  Sender: FDA-Public Use
  Company Number: B0619823A

PATIENT
  Age: 24 Year
  Sex: Female

DRUGS (2)
  1. RELENZA [Suspect]
     Route: 065
     Dates: start: 20091127, end: 20091127
  2. TAMIFLU [Concomitant]
     Dosage: 75MG PER DAY
     Route: 065
     Dates: start: 20091101, end: 20091101

REACTIONS (4)
  - DRUG EXPOSURE DURING PREGNANCY [None]
  - ERYTHEMA [None]
  - PETECHIAE [None]
  - VOMITING [None]
